FAERS Safety Report 5624739-5 (Version None)
Quarter: 2008Q1

REPORT INFORMATION
  Report Type: 
  Country: None (occurrence: None)
  Receive Date: 20080213
  Receipt Date: 20080205
  Transmission Date: 20080703
  Serious: Yes (Death, Hospitalization)
  Sender: FDA-Public Use
  Company Number: US-GENENTECH-251863

PATIENT
  Sex: Female
  Weight: 68.9 kg

DRUGS (9)
  1. AVASTIN [Suspect]
     Indication: BREAST CANCER METASTATIC
     Dosage: 5 MG/KG, QOW
     Route: 042
     Dates: start: 20070914, end: 20071105
  2. TAXOL [Concomitant]
     Indication: BREAST CANCER METASTATIC
     Dosage: 130 MG, UNK
     Dates: start: 20070914
  3. PAMIDRONATE DISODIUM [Concomitant]
     Indication: DRUG USE FOR UNKNOWN INDICATION
     Dosage: 90 MG, 1/MONTH
     Dates: start: 20070810
  4. PERCOCET [Concomitant]
     Indication: DRUG USE FOR UNKNOWN INDICATION
  5. ATIVAN [Concomitant]
     Indication: DRUG USE FOR UNKNOWN INDICATION
  6. SPIRONOLACTONE [Concomitant]
     Indication: DRUG USE FOR UNKNOWN INDICATION
  7. ZYRTEC [Concomitant]
     Indication: DRUG USE FOR UNKNOWN INDICATION
  8. COMPAZINE [Concomitant]
     Indication: DRUG USE FOR UNKNOWN INDICATION
  9. DEXAMETHASONE TAB [Concomitant]
     Indication: DRUG USE FOR UNKNOWN INDICATION

REACTIONS (1)
  - HEPATIC FAILURE [None]
